FAERS Safety Report 6193092-3 (Version None)
Quarter: 2009Q2

REPORT INFORMATION
  Report Type: 
  Country: None (occurrence: None)
  Receive Date: 20090514
  Receipt Date: 20080701
  Transmission Date: 20091009
  Serious: Yes (Hospitalization)
  Sender: FDA-Public Use
  Company Number: 2008AL004355

PATIENT
  Age: 87 Year
  Sex: Male
  Weight: 54.4316 kg

DRUGS (4)
  1. DIGOXIN [Suspect]
     Indication: ATRIAL FIBRILLATION
     Dosage: 0.25MG, QD, PO
     Route: 048
  2. LANOXIN [Concomitant]
  3. COUMADIN [Concomitant]
  4. FLOMAX [Concomitant]

REACTIONS (8)
  - ASTHENIA [None]
  - BLOOD URINE PRESENT [None]
  - CARDIOACTIVE DRUG LEVEL INCREASED [None]
  - DIZZINESS [None]
  - DYSSTASIA [None]
  - ILL-DEFINED DISORDER [None]
  - INCOHERENT [None]
  - RENAL DISORDER [None]
